FAERS Safety Report 17233501 (Version 1)
Quarter: 2020Q1

REPORT INFORMATION
  Report Type: Spontaneous
  Country: US (occurrence: US)
  Receive Date: 20200104
  Receipt Date: 20200104
  Transmission Date: 20200409
  Serious: No
  Sender: FDA-Public Use
  Company Number: US-DRREDDYS-USA/USA/19/0117914

PATIENT
  Sex: Female
  Weight: 58.1 kg

DRUGS (2)
  1. SUMATRIPTAN INJECTION USP, 6 MG/0.5 ML [Suspect]
     Active Substance: SUMATRIPTAN
     Indication: MIGRAINE
     Dosage: 6 MG/0.5 ML, ONCE EVERY 6-8 HOURS
     Route: 058
     Dates: start: 201903
  2. GLIPIZIDE. [Concomitant]
     Active Substance: GLIPIZIDE
     Indication: PRODUCT USED FOR UNKNOWN INDICATION
     Route: 048

REACTIONS (5)
  - Injection site pain [Unknown]
  - Hypoaesthesia [Unknown]
  - Product dose omission [Unknown]
  - Product quality issue [Unknown]
  - Pain in extremity [Unknown]
